FAERS Safety Report 9471959 (Version 4)
Quarter: 2013Q4

REPORT INFORMATION
  Report Type: Spontaneous
  Country: US (occurrence: US)
  Receive Date: 20130823
  Receipt Date: 20131022
  Transmission Date: 20140711
  Serious: Yes (Hospitalization, Other)
  Sender: FDA-Public Use
  Company Number: US-BIOGENIDEC-2013BI078523

PATIENT
  Age: 42 Year
  Sex: Female

DRUGS (1)
  1. AVONEX [Suspect]
     Indication: MULTIPLE SCLEROSIS
     Route: 030
     Dates: start: 20120615

REACTIONS (6)
  - Loss of consciousness [Unknown]
  - Myocardial infarction [Recovered/Resolved]
  - Apparent death [Recovered/Resolved]
  - Multiple sclerosis [Not Recovered/Not Resolved]
  - General symptom [Not Recovered/Not Resolved]
  - Fatigue [Not Recovered/Not Resolved]
